FAERS Safety Report 5020092-9 (Version None)
Quarter: 2006Q2

REPORT INFORMATION
  Report Type: 
  Country: None (occurrence: None)
  Receive Date: 20060607
  Receipt Date: 20060526
  Transmission Date: 20061013
  Serious: Yes (Other)
  Sender: FDA-Public Use
  Company Number: ES-ROCHE-449570

PATIENT
  Age: 44 Year
  Sex: Male

DRUGS (1)
  1. INVIRASE [Suspect]
     Indication: HIV INFECTION
     Route: 065
     Dates: start: 20050923

REACTIONS (1)
  - HYPERSOMNIA [None]
